FAERS Safety Report 5333769-2 (Version None)
Quarter: 2007Q2

REPORT INFORMATION
  Report Type: 
  Country: None (occurrence: None)
  Receive Date: 20070524
  Receipt Date: 20070517
  Transmission Date: 20071010
  Serious: Yes (Other)
  Sender: FDA-Public Use
  Company Number: US-PFIZER INC-2007040003

PATIENT
  Age: 14 Year
  Sex: Female

DRUGS (1)
  1. GEODON [Suspect]

REACTIONS (3)
  - BENIGN INTRACRANIAL HYPERTENSION [None]
  - MUSCULOSKELETAL STIFFNESS [None]
  - OPTIC DISCS BLURRED [None]
